FAERS Safety Report 21788886 (Version 1)
Quarter: 2022Q4

REPORT INFORMATION
  Report Type: Spontaneous
  Country: MK (occurrence: MK)
  Receive Date: 20221228
  Receipt Date: 20221228
  Transmission Date: 20230113
  Serious: Yes (Other)
  Sender: FDA-Public Use
  Company Number: MK-MYLANLABS-2022M1143423

PATIENT
  Sex: Female

DRUGS (3)
  1. SILDENAFIL [Suspect]
     Active Substance: SILDENAFIL
     Indication: Antisynthetase syndrome
     Dosage: 25 MILLIGRAM, QOD EVERY SECOND DAY
     Route: 065
  2. PREDNISONE [Suspect]
     Active Substance: PREDNISONE
     Indication: Antisynthetase syndrome
     Dosage: UNK
     Route: 065
  3. CHLOROQUINE [Suspect]
     Active Substance: CHLOROQUINE
     Indication: Antisynthetase syndrome
     Dosage: 250 MILLIGRAM, QD
     Route: 065

REACTIONS (4)
  - COVID-19 pneumonia [Unknown]
  - Condition aggravated [Recovering/Resolving]
  - Antisynthetase syndrome [Recovering/Resolving]
  - Off label use [Unknown]

NARRATIVE: CASE EVENT DATE: 20201001
